FAERS Safety Report 12983732 (Version 4)
Quarter: 2017Q1

REPORT INFORMATION
  Report Type: Spontaneous
  Country: US (occurrence: US)
  Receive Date: 20161129
  Receipt Date: 20170216
  Transmission Date: 20170428
  Serious: Yes (Hospitalization, Other)
  Sender: FDA-Public Use
  Company Number: US-SMITH AND NEPHEW, INC-2016SMT01035

PATIENT
  Age: 53 Year
  Sex: Male
  Weight: 85 kg

DRUGS (20)
  1. RENVELA [Concomitant]
     Active Substance: SEVELAMER CARBONATE
     Dosage: 1600 MG, 3X/DAY
     Route: 048
  2. ATORVASTATIN [Concomitant]
     Active Substance: ATORVASTATIN
     Dosage: 20 MG, 1X/DAY
     Route: 048
  3. PANTOPRAZOLE [Concomitant]
     Active Substance: PANTOPRAZOLE SODIUM
     Dosage: 40 MG, 1X/DAY
     Route: 048
  4. UNSPECIFIED BLOOD PRESSURE MEDICATION [Concomitant]
     Active Substance: UNSPECIFIED INGREDIENT
  5. ASPIRIN. [Concomitant]
     Active Substance: ASPIRIN
     Dosage: 81 MG, 1X/DAY
     Route: 048
  6. SELEXTRA [Concomitant]
     Dosage: 100 MG, 2X/DAY
  7. UNSPECIFIED INSULIN [Concomitant]
     Active Substance: INSULIN NOS
     Dosage: SLIDING SCALE
  8. LOSARTAN POTASSIUM. [Concomitant]
     Active Substance: LOSARTAN POTASSIUM
     Dosage: 100 MG, 1X/DAY
     Route: 048
  9. LEVOTHYROXINE. [Concomitant]
     Active Substance: LEVOTHYROXINE
     Dosage: 25 ?G, 1X/DAY
  10. COREG [Concomitant]
     Active Substance: CARVEDILOL
     Dosage: 3.125 MG, 2X/DAY
     Route: 048
  11. PLAVIX [Concomitant]
     Active Substance: CLOPIDOGREL BISULFATE
     Dosage: 75 MG, 1X/DAY
     Route: 048
  12. ZINC. [Concomitant]
     Active Substance: ZINC
     Dosage: 50 MG, 1X/DAY
  13. GABAPENTIN. [Concomitant]
     Active Substance: GABAPENTIN
     Dosage: 100 MG, 1X/DAY
  14. VITAMIN C [Concomitant]
     Active Substance: ASCORBIC ACID
     Dosage: 500 MG, 1X/DAY
     Route: 048
  15. NEPHROCAPS [Concomitant]
     Active Substance: ASCORBIC ACID\BIOTIN\CYANOCOBALAMIN\FOLIC ACID\NIACIN\PANTOTHENIC ACID\PYRIDOXINE\RIBOFLAVIN\THIAMINE
     Dosage: 1 DOSAGE UNITS, 1X/DAY
  16. SENNA [Concomitant]
     Active Substance: SENNA LEAF\SENNOSIDES\SENNOSIDES A AND B
     Dosage: 1 TABLETS, 2X/DAY
     Route: 048
  17. REGRANEX [Suspect]
     Active Substance: BECAPLERMIN
     Indication: WOUND
     Dosage: 1X/DAY, LEFT ON FOR 24 HOURS
     Route: 061
     Dates: end: 201611
  18. UNSPECIFIED ADULT BOWEL PROTOCOL [Concomitant]
  19. FOLIC ACID/VITAMIN B COMPLEX [Concomitant]
     Dosage: 1 CAPSULES, 1X/DAY
     Route: 048
  20. NORCO [Concomitant]
     Active Substance: ACETAMINOPHEN\HYDROCODONE BITARTRATE
     Dosage: 1 TABLETS, 4X/DAY AS NEEDED
     Route: 048

REACTIONS (18)
  - Hyperlipidaemia [Unknown]
  - Staphylococcal osteomyelitis [Recovering/Resolving]
  - Cellulitis staphylococcal [Recovering/Resolving]
  - Coronary artery disease [Recovering/Resolving]
  - Diabetic ulcer [Recovering/Resolving]
  - Coagulopathy [Recovering/Resolving]
  - Staphylococcal sepsis [Unknown]
  - Toe amputation [Recovered/Resolved with Sequelae]
  - Neuropathy peripheral [Unknown]
  - Acute myocardial infarction [Recovering/Resolving]
  - Pain [Unknown]
  - Incorrect drug administration duration [Recovered/Resolved]
  - Staphylococcal infection [Recovering/Resolving]
  - Anaemia of chronic disease [Unknown]
  - Osteomyelitis [Recovering/Resolving]
  - Arthritis bacterial [Recovering/Resolving]
  - Peripheral vascular disorder [Recovering/Resolving]
  - Wound dehiscence [Recovering/Resolving]

NARRATIVE: CASE EVENT DATE: 201611
